FAERS Safety Report 10170975 (Version 3)
Quarter: 2015Q1

REPORT INFORMATION
  Report Type: Spontaneous
  Country: US (occurrence: US)
  Receive Date: 20140514
  Receipt Date: 20150113
  Transmission Date: 20150720
  Serious: Yes (Hospitalization, Other)
  Sender: FDA-Public Use
  Company Number: US-BAYER-2014-071193

PATIENT
  Age: 19 Year
  Sex: Female

DRUGS (6)
  1. CITRACAL [Concomitant]
     Active Substance: CALCIUM CITRATE
     Dosage: 2 DAILY
     Route: 048
     Dates: start: 20070621
  2. VICODIN [Concomitant]
     Active Substance: ACETAMINOPHEN\HYDROCODONE BITARTRATE
     Indication: PAIN
     Dosage: P.R.N
     Route: 048
     Dates: start: 20070621
  3. YASMIN [Suspect]
     Active Substance: DROSPIRENONE\ETHINYL ESTRADIOL
     Dosage: UNK
     Route: 048
     Dates: start: 2005, end: 2007
  4. LEXAPRO [Concomitant]
     Active Substance: ESCITALOPRAM OXALATE
     Dosage: 10 MG, DAILY
     Route: 048
     Dates: start: 20070621
  5. KEFLEX [Concomitant]
     Active Substance: CEPHALEXIN
     Dosage: 500 MG, QID
     Route: 048
     Dates: start: 20070621
  6. IRON [Concomitant]
     Active Substance: IRON
     Dosage: 325 MG DAILY
     Route: 048
     Dates: start: 20070621

REACTIONS (5)
  - Pain [None]
  - Pulmonary embolism [Recovered/Resolved]
  - Injury [Recovered/Resolved]
  - Pain [Recovered/Resolved]
  - Deep vein thrombosis [None]

NARRATIVE: CASE EVENT DATE: 200706
